FAERS Safety Report 7033572-1 (Version None)
Quarter: 2010Q4

REPORT INFORMATION
  Report Type: 
  Country: None (occurrence: None)
  Receive Date: 20101007
  Receipt Date: 20100924
  Transmission Date: 20110411
  Serious: Yes (Other)
  Sender: FDA-Public Use
  Company Number: PHHY2010US16168

PATIENT
  Sex: Male
  Weight: 91.156 kg

DRUGS (11)
  1. EXJADE [Suspect]
     Indication: IRON OVERLOAD
     Dosage: 2500 MG, QD
     Route: 048
     Dates: start: 20091022, end: 20100322
  2. EXJADE [Suspect]
     Indication: SERUM FERRITIN INCREASED
     Dosage: 1750 MG, QD
     Route: 048
  3. EXJADE [Suspect]
     Dosage: 1500 MG DAILY
     Route: 048
  4. ANTIBIOTICS IV [Suspect]
     Dosage: UNK
     Route: 042
  5. FLECAINIDE ACETATE [Suspect]
     Dosage: ONE HALF A TABLET
  6. CHEMOTHERAPEUTICS NOS [Suspect]
     Dosage: ONCE EVERY THREE WEEKS
  7. DIURETICS [Concomitant]
  8. ANTINEOPLASTIC AGENTS [Concomitant]
  9. VIDAZA [Concomitant]
     Indication: MYELODYSPLASTIC SYNDROME
     Dosage: 75 MG/M^2 DI-5 Q 250
     Route: 042
     Dates: start: 20090510
  10. PHENERGAN [Concomitant]
     Dosage: UNK
  11. ZOFRAN [Concomitant]
     Dosage: UNK

REACTIONS (7)
  - DIARRHOEA [None]
  - NAUSEA [None]
  - RASH [None]
  - RENAL IMPAIRMENT [None]
  - VISUAL IMPAIRMENT [None]
  - VOMITING [None]
  - WEIGHT DECREASED [None]
